FAERS Safety Report 6011817-4 (Version None)
Quarter: 2008Q4

REPORT INFORMATION
  Report Type: 
  Country: None (occurrence: None)
  Receive Date: 20081218
  Receipt Date: 20081023
  Transmission Date: 20090506
  Serious: No
  Sender: FDA-Public Use
  Company Number: US-ABBOTT-08P-163-0483402-00

PATIENT
  Sex: Female
  Weight: 88.984 kg

DRUGS (4)
  1. MERIDIA [Suspect]
     Indication: WEIGHT CONTROL
     Route: 048
     Dates: start: 20080301, end: 20080901
  2. MERIDIA [Suspect]
     Indication: SELF ESTEEM DECREASED
  3. IBUPROFEN [Concomitant]
     Indication: PAIN
     Route: 048
  4. NERVE PILLS [Concomitant]
     Indication: NERVOUSNESS
     Route: 048

REACTIONS (4)
  - DRUG INEFFECTIVE [None]
  - FLATULENCE [None]
  - INTESTINAL FUNCTIONAL DISORDER [None]
  - WEIGHT INCREASED [None]
